FAERS Safety Report 18642772 (Version 1)
Quarter: 2020Q4

REPORT INFORMATION
  Report Type: Spontaneous
  Country: RU (occurrence: RU)
  Receive Date: 20201221
  Receipt Date: 20201221
  Transmission Date: 20210114
  Serious: Yes (Other)
  Sender: FDA-Public Use
  Company Number: RU-BAYER-2020-281723

PATIENT
  Age: 29 Year
  Sex: Female

DRUGS (1)
  1. CLARITINE 0.1 % [Suspect]
     Active Substance: LORATADINE
     Indication: SEASONAL ALLERGY
     Dosage: 1 DF, QD

REACTIONS (1)
  - Somnolence [Recovered/Resolved with Sequelae]
